FAERS Safety Report 5868263-3 (Version None)
Quarter: 2008Q3

REPORT INFORMATION
  Report Type: 
  Country: None (occurrence: None)
  Receive Date: 20080818
  Receipt Date: 20071214
  Transmission Date: 20090109
  Serious: No
  Sender: FDA-Public Use
  Company Number: 20085080

PATIENT
  Age: 19 Year
  Sex: Male

DRUGS (6)
  1. LIORESAL [Suspect]
     Indication: MUSCLE SPASTICITY
     Dosage: 1400 MCG, DAILY, INTRATHECAL
     Route: 037
  2. PROMETHAZINE HCL TABLET [Concomitant]
  3. PROMETHAZINE HCL SUPPOSITORY [Concomitant]
  4. EMLA [Concomitant]
  5. MIRALAX [Concomitant]
  6. ZOFRAN [Concomitant]

REACTIONS (10)
  - ASTHENIA [None]
  - ATAXIA [None]
  - CONSTIPATION [None]
  - DRUG INEFFECTIVE [None]
  - HYPERHIDROSIS [None]
  - HYPERTONIA [None]
  - HYPOTONIA [None]
  - NAUSEA [None]
  - OVERDOSE [None]
  - VOMITING [None]
